FAERS Safety Report 4953547-3 (Version None)
Quarter: 2006Q1

REPORT INFORMATION
  Report Type: 
  Country: None (occurrence: None)
  Receive Date: 20060324
  Receipt Date: 20060315
  Transmission Date: 20060701
  Serious: Yes (Hospitalization, Other)
  Sender: FDA-Public Use
  Company Number: US-ABBOTT-06P-163-0328238-00

PATIENT
  Sex: Male
  Weight: 72.64 kg

DRUGS (3)
  1. DEPAKOTE [Suspect]
     Indication: CONVULSION
     Route: 048
     Dates: start: 20050301, end: 20060214
  2. DEPAKOTE [Suspect]
     Dates: start: 20060307
  3. DEPAKOTE ER [Suspect]
     Indication: CONVULSION
     Route: 048
     Dates: start: 20060214, end: 20060228

REACTIONS (2)
  - EPENDYMOMA MALIGNANT [None]
  - RASH [None]
